FAERS Safety Report 18814433 (Version 1)
Quarter: 2021Q1

REPORT INFORMATION
  Report Type: Spontaneous
  Country: US (occurrence: US)
  Receive Date: 20210201
  Receipt Date: 20210201
  Transmission Date: 20210419
  Serious: No
  Sender: FDA-Public Use
  Company Number: US-SA-2021SA023740

PATIENT
  Age: 14 Year
  Sex: Male
  Weight: 49.89 kg

DRUGS (1)
  1. DUPIXENT [Suspect]
     Active Substance: DUPILUMAB
     Dosage: 300 MG, QOW
     Dates: start: 20200120

REACTIONS (3)
  - Dyspepsia [Unknown]
  - Product use issue [Unknown]
  - Abdominal pain [Unknown]
